FAERS Safety Report 4752957-7 (Version None)
Quarter: 2005Q3

REPORT INFORMATION
  Report Type: 
  Country: None (occurrence: None)
  Receive Date: 20050825
  Receipt Date: 20050809
  Transmission Date: 20060218
  Serious: Yes (Other)
  Sender: FDA-Public Use
  Company Number: S05-USA-01213-02

PATIENT
  Sex: Female
  Weight: 2.2362 kg

DRUGS (5)
  1. LEXAPRO [Suspect]
     Indication: DEPRESSION
     Dosage: 20 MG QD TRANSPLACENTAL
     Route: 064
     Dates: start: 20040501, end: 20050214
  2. LEXAPRO [Suspect]
     Indication: DEPRESSION
     Dosage: 20 MG QD BF
     Dates: start: 20050214, end: 20050227
  3. TYLENOL PM [Concomitant]
  4. STADOL [Concomitant]
  5. DARVOCET [Concomitant]

REACTIONS (8)
  - CONSTIPATION [None]
  - DECREASED ACTIVITY [None]
  - DRUG EXPOSURE DURING PREGNANCY [None]
  - DRUG EXPOSURE VIA BREAST MILK [None]
  - FEEDING DISORDER NEONATAL [None]
  - NEONATAL DISORDER [None]
  - SMALL FOR DATES BABY [None]
  - SOMNOLENCE NEONATAL [None]
